FAERS Safety Report 8116271-4 (Version None)
Quarter: 2012Q1

REPORT INFORMATION
  Report Type: 
  Country: None (occurrence: None)
  Receive Date: 20120131
  Receipt Date: 20120126
  Transmission Date: 20120608
  Serious: Yes (Death, Other)
  Sender: FDA-Public Use
  Company Number: 2012SP004153

PATIENT
  Age: 63 Year
  Sex: Male

DRUGS (2)
  1. POSACONAZOLE [Suspect]
     Indication: PROPHYLAXIS
     Dosage: 200 MG;TID 200 MG;QID
     Dates: start: 20110220, end: 20110304
  2. POSACONAZOLE [Suspect]
     Indication: PROPHYLAXIS
     Dosage: 200 MG;TID 200 MG;QID
     Dates: start: 20110131, end: 20110219

REACTIONS (4)
  - RESPIRATORY FAILURE [None]
  - RENAL FAILURE [None]
  - HEPATIC FAILURE [None]
  - INFECTION [None]
